FAERS Safety Report 10144233 (Version 1)
Quarter: 2014Q2

REPORT INFORMATION
  Report Type: Report from Study
  Country: None (occurrence: US)
  Receive Date: 20140430
  Receipt Date: 20140430
  Transmission Date: 20141212
  Serious: Yes (Other)
  Sender: FDA-Public Use
  Company Number: US-BAXTER-2014BAX020614

PATIENT
  Age: 73 Year
  Sex: Female
  Weight: 77.1 kg

DRUGS (2)
  1. CYTOXAN? (CYCLOPHOSPHAMIDE FOR INJECTION, USP) [Suspect]
     Indication: PRODUCT USED FOR UNKNOWN INDICATION
     Route: 042
     Dates: start: 20130913, end: 20130913
  2. MELPHALAN [Suspect]
     Indication: BONE MARROW CONDITIONING REGIMEN
     Dosage: X2
     Route: 042
     Dates: start: 20130930, end: 20131001

REACTIONS (1)
  - Pneumonia [Not Recovered/Not Resolved]
